FAERS Safety Report 17237641 (Version 1)
Quarter: 2020Q1

REPORT INFORMATION
  Report Type: Spontaneous
  Country: FR (occurrence: FR)
  Receive Date: 20200106
  Receipt Date: 20200106
  Transmission Date: 20200409
  Serious: Yes (Other)
  Sender: FDA-Public Use
  Company Number: FR-MYLANLABS-2020M1001203

PATIENT
  Age: 64 Year
  Sex: Male

DRUGS (3)
  1. MORPHINE [Suspect]
     Active Substance: MORPHINE
     Indication: PAIN
     Dosage: UNK
     Route: 041
     Dates: start: 20190722
  2. PIPERACILLIN AND TAZOBACTAM [Suspect]
     Active Substance: PIPERACILLIN SODIUM\TAZOBACTAM SODIUM
     Indication: INFECTION
     Dosage: UNK
     Route: 041
     Dates: start: 20190719, end: 20190805
  3. ALPRAZOLAM ARROW [Suspect]
     Active Substance: ALPRAZOLAM
     Indication: AGITATION
     Dosage: UNK
     Route: 048
     Dates: start: 20190804, end: 20190804

REACTIONS (1)
  - Persecutory delusion [Recovering/Resolving]

NARRATIVE: CASE EVENT DATE: 201907
